FAERS Safety Report 5254532-7 (Version None)
Quarter: 2007Q1

REPORT INFORMATION
  Report Type: 
  Country: None (occurrence: None)
  Receive Date: 20070302
  Receipt Date: 20070221
  Transmission Date: 20070707
  Serious: Yes (Life-Threatening)
  Sender: FDA-Public Use
  Company Number: TH-BRISTOL-MYERS SQUIBB COMPANY-13432372

PATIENT
  Sex: Female

DRUGS (5)
  1. REYATAZ [Suspect]
     Indication: HIV INFECTION
     Route: 048
     Dates: start: 20060303, end: 20060313
  2. NORVIR [Suspect]
     Indication: HIV INFECTION
     Route: 048
     Dates: start: 20060305, end: 20060313
  3. NEVIRAPINE [Suspect]
     Route: 048
     Dates: start: 20060305, end: 20060313
  4. ABACAVIR [Suspect]
     Indication: HIV INFECTION
     Route: 048
     Dates: start: 20060305, end: 20060313
  5. LAMIVUDINE [Suspect]
     Indication: HIV INFECTION
     Route: 048
     Dates: start: 20060305, end: 20060313

REACTIONS (4)
  - BLOOD BILIRUBIN UNCONJUGATED INCREASED [None]
  - JAUNDICE [None]
  - OCULAR ICTERUS [None]
  - RED BLOOD CELL SCHISTOCYTES PRESENT [None]
